FAERS Safety Report 24097186 (Version 1)
Quarter: 2024Q3

REPORT INFORMATION
  Report Type: Report from Study
  Country: US (occurrence: None)
  Receive Date: 20240716
  Receipt Date: 20240716
  Transmission Date: 20241017
  Serious: Yes (Other)
  Sender: ASTRAZENECA
  Company Number: 2019SF74295

PATIENT
  Sex: Female

DRUGS (2)
  1. LYNPARZA [Suspect]
     Active Substance: OLAPARIB
     Indication: Ovarian cancer
     Dosage: 150 MG TAKE 2 TABLETS EVERY MORNING AND 1 TABLET EVERY EVENING
     Route: 048
     Dates: start: 201901
  2. DILANTIN [Concomitant]
     Active Substance: PHENYTOIN

REACTIONS (2)
  - Toxicity to various agents [Unknown]
  - Seizure [Unknown]
